FAERS Safety Report 6834743-7 (Version None)
Quarter: 2010Q3

REPORT INFORMATION
  Report Type: 
  Country: None (occurrence: None)
  Receive Date: 20100712
  Receipt Date: 20070419
  Transmission Date: 20110219
  Serious: No
  Sender: FDA-Public Use
  Company Number: US-PFIZER INC-2007033226

PATIENT
  Sex: Female
  Weight: 83.91 kg

DRUGS (8)
  1. CHANTIX [Suspect]
     Indication: SMOKING CESSATION THERAPY
     Route: 048
     Dates: start: 20070331
  2. KLONOPIN [Concomitant]
     Route: 048
  3. CALCIUM [Concomitant]
     Route: 048
  4. VITAMINS [Concomitant]
     Route: 048
  5. INDERAL LA [Concomitant]
     Route: 048
  6. BENTYL [Concomitant]
     Route: 048
  7. REGLAN [Concomitant]
     Route: 048
  8. LEXAPRO [Concomitant]
     Route: 048

REACTIONS (3)
  - DRY EYE [None]
  - EYE COMPLICATION ASSOCIATED WITH DEVICE [None]
  - OCULAR HYPERAEMIA [None]
